FAERS Safety Report 8843891 (Version 1)
Quarter: 2012Q4

REPORT INFORMATION
  Report Type: 
  Country: US (occurrence: US)
  Receive Date: 20121016
  Receipt Date: 20121016
  Transmission Date: 20130627
  Serious: Yes (Other)
  Sender: FDA-Public Use
  Company Number: US-PFIZER INC-2012252398

PATIENT
  Age: 50 Year
  Sex: Female
  Weight: 91.16 kg

DRUGS (5)
  1. EFFEXOR XR [Suspect]
     Indication: DEPRESSION
     Dosage: UNK, 1x/day
     Route: 048
     Dates: start: 2010
  2. EFFEXOR XR [Suspect]
     Dosage: 225 mg, 1x/day
     Route: 048
     Dates: end: 20120910
  3. EFFEXOR XR [Suspect]
     Dosage: 375 mg, 1x/day
     Route: 048
     Dates: start: 20120910
  4. CLONAZEPIN [Concomitant]
     Indication: SLEEP DISORDER
     Dosage: 2 mg, UNK
  5. PROPRANOLOL [Concomitant]
     Indication: PANIC ATTACK
     Dosage: UNK
     Dates: end: 201209

REACTIONS (4)
  - Suicidal ideation [Recovered/Resolved]
  - Panic attack [Recovered/Resolved]
  - Mental disorder [Recovered/Resolved]
  - Incorrect dose administered [Unknown]
